FAERS Safety Report 19063624 (Version 1)
Quarter: 2021Q1

REPORT INFORMATION
  Report Type: Spontaneous
  Country: SE (occurrence: SE)
  Receive Date: 20210326
  Receipt Date: 20210326
  Transmission Date: 20210420
  Serious: Yes (Other)
  Sender: FDA-Public Use
  Company Number: SE-GILEAD-2021-0522594

PATIENT
  Age: 57 Year
  Sex: Male

DRUGS (13)
  1. TAVEGYL [Concomitant]
     Active Substance: CLEMASTINE FUMARATE
  2. FRAGMIN [Concomitant]
     Active Substance: DALTEPARIN SODIUM
  3. ZOFRAN [ONDANSETRON HYDROCHLORIDE DIHYDRATE] [Concomitant]
  4. NYSTATIN. [Concomitant]
     Active Substance: NYSTATIN
  5. OMEPRAZOLE TEVA [OMEPRAZOLE] [Concomitant]
  6. VEKLURY [Suspect]
     Active Substance: REMDESIVIR
     Dosage: UNK
     Route: 042
     Dates: start: 20210202, end: 20210211
  7. METOPROLOL SANDOZ [METOPROLOL TARTRATE] [Concomitant]
     Active Substance: METOPROLOL TARTRATE
  8. PRIMPERAN [Concomitant]
     Active Substance: METOCLOPRAMIDE HYDROCHLORIDE
  9. CITALOPRAM [Concomitant]
     Active Substance: CITALOPRAM HYDROBROMIDE
  10. VEKLURY [Suspect]
     Active Substance: REMDESIVIR
     Indication: COVID-19
     Dosage: UNK
     Route: 042
     Dates: start: 20210123, end: 20210127
  11. VEKLURY [Suspect]
     Active Substance: REMDESIVIR
     Dosage: UNK
     Route: 042
     Dates: start: 20210227, end: 20210303
  12. DEXAMETHASONE. [Concomitant]
     Active Substance: DEXAMETHASONE
  13. PRONAXEN [Concomitant]
     Active Substance: NAPROXEN

REACTIONS (1)
  - Leukopenia [Recovered/Resolved]

NARRATIVE: CASE EVENT DATE: 202101
